FAERS Safety Report 6821199-3 (Version None)
Quarter: 2010Q3

REPORT INFORMATION
  Report Type: 
  Country: None (occurrence: None)
  Receive Date: 20100707
  Receipt Date: 20080505
  Transmission Date: 20110219
  Serious: No
  Sender: FDA-Public Use
  Company Number: US-PFIZER INC-2008035219

PATIENT
  Sex: Female
  Weight: 58.181 kg

DRUGS (3)
  1. SERTRALINE [Suspect]
     Indication: ANXIETY
     Dates: start: 20071210
  2. SERTRALINE [Suspect]
     Indication: PANIC ATTACK
  3. XANAX [Concomitant]

REACTIONS (3)
  - APATHY [None]
  - DRUG INEFFECTIVE [None]
  - HYPERSOMNIA [None]
